FAERS Safety Report 5919628-2 (Version None)
Quarter: 2008Q4

REPORT INFORMATION
  Report Type: 
  Country: None (occurrence: None)
  Receive Date: 20081015
  Receipt Date: 20081009
  Transmission Date: 20090506
  Serious: Yes (Life-Threatening, Hospitalization, Other)
  Sender: FDA-Public Use
  Company Number: US-GILEAD-2008-0017418

PATIENT
  Sex: Male
  Weight: 91.254 kg

DRUGS (5)
  1. LETAIRIS [Suspect]
     Indication: PULMONARY ARTERIAL HYPERTENSION
     Route: 048
     Dates: start: 20071101
  2. REVATIO [Concomitant]
     Route: 048
  3. COUMADIN [Concomitant]
  4. ZOCOR [Concomitant]
     Route: 048
  5. METOPROLOL TARTRATE [Concomitant]

REACTIONS (5)
  - ARTHRALGIA [None]
  - DECREASED APPETITE [None]
  - LIVER FUNCTION TEST ABNORMAL [None]
  - MUSCULAR WEAKNESS [None]
  - SPLENIC RUPTURE [None]
